FAERS Safety Report 20460001 (Version 1)
Quarter: 2022Q1

REPORT INFORMATION
  Report Type: Other
  Country: US (occurrence: None)
  Receive Date: 20220211
  Receipt Date: 20220211
  Transmission Date: 20220423
  Serious: Yes (Death)
  Sender: FDA-Public Use
  Company Number: US-ROCHE-3006162

PATIENT
  Sex: Male

DRUGS (19)
  1. LUCENTIS [Suspect]
     Active Substance: RANIBIZUMAB
     Indication: Type 2 diabetes mellitus
     Route: 065
  2. LUCENTIS [Suspect]
     Active Substance: RANIBIZUMAB
     Indication: Diabetic retinopathy
  3. LUCENTIS [Suspect]
     Active Substance: RANIBIZUMAB
     Indication: Macular oedema
  4. LUCENTIS [Suspect]
     Active Substance: RANIBIZUMAB
     Indication: Macular oedema
  5. ATORVASTATIN CALCIUM [Concomitant]
     Active Substance: ATORVASTATIN CALCIUM
  6. KETOCONAZOLE [Concomitant]
     Active Substance: KETOCONAZOLE
  7. DULOXETINE [Concomitant]
     Active Substance: DULOXETINE
  8. ASPIRIN [Concomitant]
     Active Substance: ASPIRIN
  9. APAP [Concomitant]
     Active Substance: ACETAMINOPHEN
  10. FOLIC ACID [Concomitant]
     Active Substance: FOLIC ACID
  11. GABAPENTIN [Concomitant]
     Active Substance: GABAPENTIN
  12. FUROSEMIDE [Concomitant]
     Active Substance: FUROSEMIDE
  13. LISINOPRIL [Concomitant]
     Active Substance: LISINOPRIL
  14. LEVEMIR [Concomitant]
     Active Substance: INSULIN DETEMIR
  15. PANTOPRAZOLE [Concomitant]
     Active Substance: PANTOPRAZOLE
  16. METHOTREXATE [Concomitant]
     Active Substance: METHOTREXATE
  17. OXYCODONE HYDROCHLORIDE [Concomitant]
     Active Substance: OXYCODONE HYDROCHLORIDE
  18. TRAZODONE HYDROCHLORIDE [Concomitant]
     Active Substance: TRAZODONE HYDROCHLORIDE
  19. CARVEDILOL [Concomitant]
     Active Substance: CARVEDILOL

REACTIONS (3)
  - Death [Fatal]
  - Myalgia [Unknown]
  - Depression [Unknown]
